FAERS Safety Report 6970564-2 (Version None)
Quarter: 2010Q3

REPORT INFORMATION
  Report Type: 
  Country: None (occurrence: None)
  Receive Date: 20100908
  Receipt Date: 20100902
  Transmission Date: 20110219
  Serious: Yes (Other)
  Sender: FDA-Public Use
  Company Number: US-GENZYME-THYM-1001815

PATIENT
  Age: 69 Year
  Sex: Female

DRUGS (7)
  1. THYMOGLOBULIN [Suspect]
     Indication: PROPHYLAXIS AGAINST TRANSPLANT REJECTION
     Dosage: 1.5 MG/KG, QD
     Route: 042
  2. TACROLIMUS [Concomitant]
     Indication: PROPHYLAXIS AGAINST TRANSPLANT REJECTION
     Dosage: UNK
  3. MYFORTIC [Concomitant]
     Indication: PROPHYLAXIS AGAINST TRANSPLANT REJECTION
     Dosage: 1440 MG, QD
  4. MYFORTIC [Concomitant]
     Dosage: 1080 MG, QD
  5. PREDNISONE [Concomitant]
     Indication: PROPHYLAXIS AGAINST TRANSPLANT REJECTION
     Dosage: 10 MG, QD
  6. PREDNISONE [Concomitant]
     Dosage: 5 MG, QD
  7. PREDNISONE [Concomitant]
     Dosage: 7.5 MG, QD

REACTIONS (2)
  - GOUT [None]
  - VIRAEMIA [None]
